FAERS Safety Report 8907918 (Version 1)
Quarter: 2012Q4

REPORT INFORMATION
  Report Type: 
  Country: TN (occurrence: TN)
  Receive Date: 20121113
  Receipt Date: 20121113
  Transmission Date: 20130627
  Serious: Yes (Other)
  Sender: FDA-Public Use
  Company Number: TN-WATSON-2012-19432

PATIENT
  Age: 16 Year
  Sex: Female

DRUGS (2)
  1. CIPROFLOXACIN HYDROCHLORIDE (UNKNOWN) [Suspect]
     Indication: URINARY TRACT INFECTION
     Dosage: UNK, unknown
     Route: 065
  2. NIFLUMIC ACID [Suspect]
     Indication: URINARY TRACT INFECTION
     Dosage: UNK, unknown
     Route: 065

REACTIONS (2)
  - Renal papillary necrosis [Recovered/Resolved]
  - Renal failure acute [Recovered/Resolved]
